FAERS Safety Report 4289453-X (Version None)
Quarter: 2004Q1

REPORT INFORMATION
  Report Type: 
  Country: None (occurrence: None)
  Receive Date: 20040206
  Receipt Date: 20040123
  Transmission Date: 20041129
  Serious: Yes (Death)
  Sender: FDA-Public Use
  Company Number: 2004-UK-00069UK

PATIENT
  Sex: Male

DRUGS (1)
  1. SPIRIVA [Suspect]
     Dosage: 6 INHALATIONS (PERIOD UNSPECIFIED) IH
     Route: 055

REACTIONS (1)
  - DEATH [None]
